FAERS Safety Report 12551971 (Version 1)
Quarter: 2016Q3

REPORT INFORMATION
  Report Type: Report from Study
  Country: US (occurrence: US)
  Receive Date: 20160713
  Receipt Date: 20160713
  Transmission Date: 20161109
  Serious: Yes (Other)
  Sender: FDA-Public Use
  Company Number: US-GILEAD-2016-0222467

PATIENT
  Age: 42 Year
  Sex: Female

DRUGS (1)
  1. AMBRISENTAN [Suspect]
     Active Substance: AMBRISENTAN
     Indication: PRODUCT USED FOR UNKNOWN INDICATION
     Dosage: 10 MG, UNK
     Route: 065
     Dates: start: 20110919

REACTIONS (8)
  - Terminal state [Unknown]
  - Malaise [Unknown]
  - Walking disability [Unknown]
  - General physical health deterioration [Unknown]
  - Dyspnoea [Unknown]
  - Bedridden [Unknown]
  - Dizziness [Unknown]
  - Movement disorder [Unknown]
